FAERS Safety Report 5214958-4 (Version None)
Quarter: 2007Q1

REPORT INFORMATION
  Report Type: 
  Country: None (occurrence: None)
  Receive Date: 20070122
  Receipt Date: 20070110
  Transmission Date: 20070707
  Serious: Yes (Hospitalization, Other)
  Sender: FDA-Public Use
  Company Number: US-PFIZER INC-2006026078

PATIENT
  Sex: Male

DRUGS (4)
  1. NEURONTIN [Suspect]
     Indication: BIPOLAR DISORDER
     Dosage: TEXT:UNKNOWN-FREQ:UNKNOWN
     Route: 065
     Dates: start: 20000509, end: 20010119
  2. DILANTIN [Suspect]
     Indication: CONVULSION
     Dosage: TEXT:UNKNOWN-FREQ:UNKNOWN
     Route: 065
  3. LITHIUM CARBONATE [Suspect]
     Dates: start: 20000204, end: 20000413
  4. PAMELOR [Suspect]
     Indication: DEPRESSION
     Dosage: DAILY DOSE:150MG
     Dates: start: 20010816, end: 20050815

REACTIONS (26)
  - APHASIA [None]
  - BIPOLAR DISORDER [None]
  - BIPOLAR I DISORDER [None]
  - BLOOD ELECTROLYTES ABNORMAL [None]
  - CONVULSION [None]
  - DECUBITUS ULCER [None]
  - DEEP VEIN THROMBOSIS [None]
  - DRUG INEFFECTIVE [None]
  - DRUG TOXICITY [None]
  - DYSPHONIA [None]
  - FALL [None]
  - GUN SHOT WOUND [None]
  - HEAD INJURY [None]
  - MEMORY IMPAIRMENT [None]
  - MENTAL STATUS CHANGES [None]
  - PNEUMONIA [None]
  - PYREXIA [None]
  - RENAL FAILURE [None]
  - RENAL TUBULAR NECROSIS [None]
  - RESPIRATORY FAILURE [None]
  - RHABDOMYOLYSIS [None]
  - SUICIDE ATTEMPT [None]
  - THERAPEUTIC AGENT TOXICITY [None]
  - TRAUMATIC BRAIN INJURY [None]
  - UNRESPONSIVE TO STIMULI [None]
  - UROSEPSIS [None]
